FAERS Safety Report 4689081-8 (Version None)
Quarter: 2005Q2

REPORT INFORMATION
  Report Type: 
  Country: None (occurrence: None)
  Receive Date: 20050608
  Receipt Date: 20050314
  Transmission Date: 20051028
  Serious: No
  Sender: FDA-Public Use
  Company Number: 2005-BP-04325BP

PATIENT
  Age: 73 Year
  Sex: Male

DRUGS (6)
  1. SPIRIVA [Suspect]
     Indication: CHRONIC OBSTRUCTIVE PULMONARY DISEASE
     Dosage: 18 MCG (18 MCG, QD), IH
     Route: 055
     Dates: start: 20050101
  2. ALBUTEROL [Concomitant]
  3. ADVAIR DISKUS 100/50 [Concomitant]
  4. AMBIEN [Concomitant]
  5. HYDROCHLOROTHIAZIDE [Concomitant]
  6. SYNTHROID [Concomitant]

REACTIONS (3)
  - CONSTIPATION [None]
  - HEART RATE INCREASED [None]
  - HEART RATE IRREGULAR [None]
